FAERS Safety Report 9354801 (Version 1)
Quarter: 2013Q2

REPORT INFORMATION
  Report Type: Report from Study
  Country: CA (occurrence: CA)
  Receive Date: 20130619
  Receipt Date: 20130619
  Transmission Date: 20140414
  Serious: Yes (Hospitalization, Other)
  Sender: FDA-Public Use
  Company Number: CA-ROCHE-1137307

PATIENT
  Age: 75 Year
  Sex: Female
  Weight: 82.6 kg

DRUGS (11)
  1. RITUXIMAB [Suspect]
     Indication: RHEUMATOID ARTHRITIS
     Route: 042
     Dates: start: 20120301
  2. PREDNISONE [Concomitant]
  3. LIPIDIL [Concomitant]
  4. CIMETIDINE [Concomitant]
  5. DIPHENHYDRAMINE HYDROCHLORIDE [Concomitant]
     Route: 048
     Dates: start: 20120301
  6. DIPHENHYDRAMINE HYDROCHLORIDE [Concomitant]
     Route: 048
  7. ACETAMINOPHEN [Concomitant]
     Indication: PREMEDICATION
     Route: 048
     Dates: start: 20120301
  8. ACETAMINOPHEN [Concomitant]
     Route: 048
     Dates: start: 20120912
  9. ACETAMINOPHEN [Concomitant]
     Route: 048
     Dates: start: 20120926
  10. METHYLPREDNISOLONE [Concomitant]
     Indication: PREMEDICATION
     Route: 042
     Dates: start: 20120301
  11. ALENDRONATE [Concomitant]

REACTIONS (6)
  - Dyspnoea [Unknown]
  - Thrombosis [Unknown]
  - Hypothyroidism [Unknown]
  - Blood iron decreased [Unknown]
  - Migraine [Not Recovered/Not Resolved]
  - Rhinorrhoea [Not Recovered/Not Resolved]
